FAERS Safety Report 7106287-9 (Version None)
Quarter: 2010Q4

REPORT INFORMATION
  Report Type: 
  Country: None (occurrence: None)
  Receive Date: 20101116
  Receipt Date: 20101102
  Transmission Date: 20110411
  Serious: Yes (Hospitalization)
  Sender: FDA-Public Use
  Company Number: IL-NAPPMUNDI-GBR-2010-0007298

PATIENT
  Sex: Female

DRUGS (2)
  1. BUTRANS TRANSDERMAL PATCH [Suspect]
     Indication: PRODUCT USED FOR UNKNOWN INDICATION
     Route: 062
  2. ELTROXIN [Concomitant]
     Indication: THYROID FUNCTION TEST ABNORMAL

REACTIONS (1)
  - ATRIAL FIBRILLATION [None]
